FAERS Safety Report 6335876-4 (Version None)
Quarter: 2009Q3

REPORT INFORMATION
  Report Type: 
  Country: None (occurrence: None)
  Receive Date: 20090828
  Receipt Date: 20090821
  Transmission Date: 20100115
  Serious: Yes (Other)
  Sender: FDA-Public Use
  Company Number: 2009JP005176

PATIENT
  Age: 72 Year
  Sex: Male

DRUGS (2)
  1. SOLIFENACIN BLINDED(CODE NOT BROKEN) TABLET, UNKNOWN [Suspect]
     Indication: HYPERTONIC BLADDER
     Dosage: 2 DF, ORAL
     Route: 048
     Dates: start: 20090529
  2. TAMSULOSIN HCL [Suspect]
     Indication: BENIGN PROSTATIC HYPERPLASIA
     Dosage: 0.2 MG, ORAL
     Route: 048
     Dates: start: 20081121

REACTIONS (1)
  - CEREBRAL INFARCTION [None]
